FAERS Safety Report 26209646 (Version 1)
Quarter: 2025Q4

REPORT INFORMATION
  Report Type: Spontaneous
  Country: EU (occurrence: EU)
  Receive Date: 20251229
  Receipt Date: 20251229
  Transmission Date: 20260118
  Serious: Yes (Other)
  Sender: BAYER HEALTHCARE PHARMACEUTICALS INC.
  Company Number: EU-BAYER-2025A168682

PATIENT
  Age: 50 Year
  Sex: Male

DRUGS (3)
  1. NUBEQA [Suspect]
     Active Substance: DAROLUTAMIDE
     Dosage: 600 MG, BID
     Dates: start: 20250408
  2. DOCETAXEL [Concomitant]
     Active Substance: DOCETAXEL
     Dosage: UNK
     Dates: start: 2025
  3. MOCLOBEMIDE [Concomitant]
     Active Substance: MOCLOBEMIDE

REACTIONS (3)
  - Urinary retention [None]
  - Prostatic specific antigen increased [None]
  - Depressed mood [None]

NARRATIVE: CASE EVENT DATE: 20250101
